FAERS Safety Report 5701747-7 (Version None)
Quarter: 2008Q2

REPORT INFORMATION
  Report Type: 
  Country: None (occurrence: None)
  Receive Date: 20080409
  Receipt Date: 20080409
  Transmission Date: 20081010
  Serious: Yes (Hospitalization)
  Sender: FDA-Public Use
  Company Number: None

PATIENT
  Age: 68 Year
  Sex: Male

DRUGS (2)
  1. MESALAMINE [Suspect]
     Indication: COLITIS ULCERATIVE
     Dosage: 2000MG  DAILY  PO
     Route: 048
     Dates: start: 20070602, end: 20070612
  2. PREDNISONE [Concomitant]

REACTIONS (5)
  - FEELING ABNORMAL [None]
  - MALAISE [None]
  - PYREXIA [None]
  - SKIN IRRITATION [None]
  - TREMOR [None]
